FAERS Safety Report 25392232 (Version 1)
Quarter: 2025Q2

REPORT INFORMATION
  Report Type: Report from Study
  Country: US (occurrence: US)
  Receive Date: 20250603
  Receipt Date: 20250603
  Transmission Date: 20250717
  Serious: Yes (Other)
  Sender: MALLINCKRODT
  Company Number: US-MALLINCKRODT-MNK202503130

PATIENT
  Sex: Female

DRUGS (2)
  1. CORTICOTROPIN [Suspect]
     Active Substance: CORTICOTROPIN
     Indication: Nephrotic syndrome
  2. CORTICOTROPIN [Suspect]
     Active Substance: CORTICOTROPIN
     Indication: Nephrotic syndrome

REACTIONS (5)
  - Renal impairment [Unknown]
  - Pollakiuria [Not Recovered/Not Resolved]
  - Diarrhoea [Recovered/Resolved]
  - Fatigue [Unknown]
  - Insomnia [Not Recovered/Not Resolved]
